FAERS Safety Report 8917109 (Version 2)
Quarter: 2013Q1

REPORT INFORMATION
  Report Type: Spontaneous
  Country: US (occurrence: US)
  Receive Date: 20121120
  Receipt Date: 20130308
  Transmission Date: 20140127
  Serious: Yes (Hospitalization, Other)
  Sender: FDA-Public Use
  Company Number: US-BAXTER-2012BAX023717

PATIENT
  Age: 39 Year
  Sex: Female

DRUGS (2)
  1. DIANEAL LOW CALCIUM [Suspect]
     Indication: PERITONEAL DIALYSIS
     Route: 033
     Dates: start: 20111204
  2. EXTRANEAL [Suspect]
     Indication: PERITONEAL DIALYSIS
     Route: 033
     Dates: start: 20111204

REACTIONS (8)
  - Arteriovenous fistula site complication [Unknown]
  - Surgical skin tear [Unknown]
  - Arteriovenous fistula site infection [Recovered/Resolved]
  - Staphylococcal abscess [Recovered/Resolved]
  - Subcutaneous abscess [Recovered/Resolved]
  - Fungal peritonitis [Recovered/Resolved]
  - Peritonitis bacterial [Recovered/Resolved]
  - Peritoneal dialysis complication [Unknown]
